FAERS Safety Report 8032582-5 (Version None)
Quarter: 2011Q4

REPORT INFORMATION
  Report Type: 
  Country: None (occurrence: None)
  Receive Date: 20111202
  Receipt Date: 20110124
  Transmission Date: 20120403
  Serious: Yes (Other)
  Sender: FDA-Public Use
  Company Number: WAES 1101USA02941

PATIENT
  Age: 66 Year
  Sex: Female
  Weight: 57.1532 kg

DRUGS (2)
  1. FOSAMAX [Suspect]
     Indication: OSTEOPOROSIS
     Dosage: 70 MG/WKY/PO
     Route: 048
     Dates: start: 20050722, end: 20050914
  2. FOSAMAX PLUS D [Suspect]
     Indication: OSTEOPOROSIS
     Dosage: 70MG/2800 IU/WKY/PO
     Route: 048
     Dates: start: 20050915, end: 20090701

REACTIONS (29)
  - IMPAIRED HEALING [None]
  - OSTEOPENIA [None]
  - SPLENIC CALCIFICATION [None]
  - ABDOMINAL PAIN UPPER [None]
  - LEFT VENTRICULAR HYPERTROPHY [None]
  - TOOTH DISORDER [None]
  - OSTEOSCLEROSIS [None]
  - DECREASED APPETITE [None]
  - UVEITIS [None]
  - DYSPNOEA [None]
  - HYPERTENSIVE HEART DISEASE [None]
  - VULVOVAGINAL DRYNESS [None]
  - ABSCESS [None]
  - COUGH [None]
  - FEMORAL ARTERIAL STENOSIS [None]
  - WEIGHT DECREASED [None]
  - OSTEONECROSIS OF JAW [None]
  - BACK PAIN [None]
  - MITRAL VALVE INCOMPETENCE [None]
  - GINGIVAL INFECTION [None]
  - HAEMORRHOIDS [None]
  - PERIPHERAL ISCHAEMIA [None]
  - OSTEOMYELITIS [None]
  - RESTLESS LEGS SYNDROME [None]
  - CHEST PAIN [None]
  - LOOSE TOOTH [None]
  - PERICARDIAL EFFUSION [None]
  - MUSCLE SPASMS [None]
  - TRICUSPID VALVE INCOMPETENCE [None]
